FAERS Safety Report 21367658 (Version 1)
Quarter: 2022Q3

REPORT INFORMATION
  Report Type: Spontaneous
  Country: US (occurrence: US)
  Receive Date: 20220923
  Receipt Date: 20220923
  Transmission Date: 20221027
  Serious: Yes (Other)
  Sender: FDA-Public Use
  Company Number: US-PURDUE-USA-2020-0284628

PATIENT
  Sex: Female

DRUGS (1)
  1. ACETAMINOPHEN\OXYCODONE HYDROCHLORIDE [Suspect]
     Active Substance: ACETAMINOPHEN\OXYCODONE HYDROCHLORIDE
     Indication: Product used for unknown indication
     Dosage: UNKNOWN
     Route: 048

REACTIONS (13)
  - Drug dependence [Unknown]
  - Cold sweat [Unknown]
  - Chills [Unknown]
  - Musculoskeletal stiffness [Unknown]
  - Depression [Unknown]
  - Panic attack [Unknown]
  - Loss of personal independence in daily activities [Unknown]
  - Dental caries [Unknown]
  - Balance disorder [Unknown]
  - Mental disorder [Unknown]
  - Dry mouth [Unknown]
  - Anxiety [Unknown]
  - Fatigue [Unknown]
